FAERS Safety Report 10862138 (Version 1)
Quarter: 2015Q1

REPORT INFORMATION
  Report Type: Spontaneous
  Country: US (occurrence: US)
  Receive Date: 20150224
  Receipt Date: 20150224
  Transmission Date: 20150721
  Serious: Yes (Hospitalization)
  Sender: FDA-Public Use
  Company Number: US-SA-2015SA020190

PATIENT
  Age: 58 Year
  Sex: Female

DRUGS (35)
  1. AUBAGIO [Suspect]
     Active Substance: TERIFLUNOMIDE
     Route: 065
  2. FISH OIL [Concomitant]
     Active Substance: FISH OIL
  3. HUMALOG [Concomitant]
     Active Substance: INSULIN LISPRO
  4. DICYCLOMINE [Concomitant]
     Active Substance: DICYCLOMINE HYDROCHLORIDE
  5. VITAMIN B12 [Concomitant]
     Active Substance: CYANOCOBALAMIN
  6. STOOL SOFTENER [Concomitant]
     Active Substance: DOCUSATE CALCIUM
  7. AMPYRA [Suspect]
     Active Substance: DALFAMPRIDINE
     Indication: MULTIPLE SCLEROSIS
     Route: 048
     Dates: start: 201208
  8. VITAMIN C [Concomitant]
     Active Substance: ASCORBIC ACID
  9. IRON [Concomitant]
     Active Substance: IRON
  10. THIAMINE HYDROCHLORIDE. [Concomitant]
     Active Substance: THIAMINE HYDROCHLORIDE
  11. VITAMIN D [Concomitant]
     Active Substance: CHOLECALCIFEROL
  12. TAMSULOSIN [Concomitant]
     Active Substance: TAMSULOSIN
  13. LOPID [Concomitant]
     Active Substance: GEMFIBROZIL
  14. MECLIZINE [Concomitant]
     Active Substance: MECLIZINE\MECLIZINE HYDROCHLORIDE
  15. VITAMIN B2 [Concomitant]
     Active Substance: RIBOFLAVIN
  16. COPAXONE [Concomitant]
     Active Substance: GLATIRAMER ACETATE
  17. ATENOLOL. [Concomitant]
     Active Substance: ATENOLOL
  18. BACTRIM DS [Concomitant]
     Active Substance: SULFAMETHOXAZOLE\TRIMETHOPRIM
  19. BLACK COHOSH [Concomitant]
     Active Substance: BLACK COHOSH
  20. BENTYL [Concomitant]
     Active Substance: DICYCLOMINE HYDROCHLORIDE
  21. GABAPENTIN. [Concomitant]
     Active Substance: GABAPENTIN
  22. RIBOFLAVIN [Concomitant]
     Active Substance: RIBOFLAVIN
  23. VITAMIN E [Concomitant]
     Active Substance: .ALPHA.-TOCOPHEROL
  24. GEMFIBROZIL. [Concomitant]
     Active Substance: GEMFIBROZIL
  25. VITAMIN B COMPLEX [Concomitant]
     Active Substance: CYANOCOBALAMIN\DEXPANTHENOL\NIACINAMIDE\PYRIDOXINE HYDROCHLORIDE\RIBOFLAVIN 5^-PHOSPHATE SODIUM\THIAMINE HYDROCHLORIDE\VITAMIN B COMPLEX
  26. FIBER [Concomitant]
     Active Substance: PSYLLIUM HUSK
  27. TIZANIDINE HYDROCHLORIDE. [Suspect]
     Active Substance: TIZANIDINE HYDROCHLORIDE
     Route: 065
  28. BACLOFEN. [Concomitant]
     Active Substance: BACLOFEN
  29. FENTANYL. [Concomitant]
     Active Substance: FENTANYL
  30. URSODIOL. [Concomitant]
     Active Substance: URSODIOL
  31. HUMULIN NOS [Concomitant]
     Active Substance: INSULIN HUMAN
  32. KLOR-CON [Concomitant]
     Active Substance: POTASSIUM CHLORIDE
  33. METOLAZONE. [Concomitant]
     Active Substance: METOLAZONE
  34. SPIRONOLACTONE. [Concomitant]
     Active Substance: SPIRONOLACTONE
  35. PRAVASTATIN [Concomitant]
     Active Substance: PRAVASTATIN\PRAVASTATIN SODIUM

REACTIONS (1)
  - Unevaluable event [Unknown]
